FAERS Safety Report 7833004-7 (Version None)
Quarter: 2011Q4

REPORT INFORMATION
  Report Type: 
  Country: None (occurrence: None)
  Receive Date: 20111024
  Receipt Date: 20110413
  Transmission Date: 20120403
  Serious: No
  Sender: FDA-Public Use
  Company Number: US-BAYER-2011-033003

PATIENT
  Sex: Male

DRUGS (7)
  1. SPIRIVA [Concomitant]
  2. MILK THISTLE [Concomitant]
  3. PROAIR HFA [Concomitant]
  4. NEXAVAR [Suspect]
     Indication: HEPATIC NEOPLASM MALIGNANT
     Dosage: 1 DF, BID
     Route: 048
  5. FLOMAX [Concomitant]
     Dosage: UNK
  6. ADVAIR DISKUS 100/50 [Concomitant]
  7. MULTI-VITAMINS [Concomitant]

REACTIONS (3)
  - HEPATIC ENZYME INCREASED [None]
  - OEDEMA PERIPHERAL [None]
  - ERYTHEMA [None]
